FAERS Safety Report 14530572 (Version 1)
Quarter: 2018Q1

REPORT INFORMATION
  Report Type: Spontaneous
  Country: US (occurrence: US)
  Receive Date: 20180213
  Receipt Date: 20180213
  Transmission Date: 20180509
  Serious: No
  Sender: FDA-Public Use
  Company Number: None

PATIENT
  Sex: Male
  Weight: 78.75 kg

DRUGS (10)
  1. HYDROCHLOROTHIAZIDE. [Concomitant]
     Active Substance: HYDROCHLOROTHIAZIDE
  2. FLUTICASONE. [Concomitant]
     Active Substance: FLUTICASONE
  3. ZOLPIDEM [Suspect]
     Active Substance: ZOLPIDEM\ZOLPIDEM TARTRATE
     Indication: INSOMNIA
     Dosage: ?          QUANTITY:1 TABLET(S);OTHER FREQUENCY:ONCE EVERY 14 DAYS;?
     Route: 048
     Dates: start: 20180212, end: 20180212
  4. VALSARTAN. [Concomitant]
     Active Substance: VALSARTAN
  5. CULTURELLE [Concomitant]
     Active Substance: LACTOBACILLUS RHAMNOSUS
  6. BABY ASPIRIN [Concomitant]
     Active Substance: ASPIRIN
  7. DEXILANT [Concomitant]
     Active Substance: DEXLANSOPRAZOLE
  8. FISH OIL [Concomitant]
     Active Substance: FISH OIL
  9. METAMUCIL [Concomitant]
     Active Substance: PLANTAGO SEED
  10. VALACYCLOVIR [Concomitant]
     Active Substance: VALACYCLOVIR HYDROCHLORIDE

REACTIONS (5)
  - Dizziness [None]
  - Gait inability [None]
  - Aggression [None]
  - Disorientation [None]
  - Somnolence [None]

NARRATIVE: CASE EVENT DATE: 20180212
